FAERS Safety Report 11057087 (Version 1)
Quarter: 2015Q2

REPORT INFORMATION
  Report Type: Spontaneous
  Country: JP (occurrence: JP)
  Receive Date: 20150422
  Receipt Date: 20150422
  Transmission Date: 20150821
  Serious: Yes (Death)
  Sender: FDA-Public Use
  Company Number: JP-PFIZER INC-2015135895

PATIENT
  Age: 44 Year
  Sex: Female

DRUGS (4)
  1. AMIKACIN [Concomitant]
     Active Substance: AMIKACIN
  2. CLARITHROMYCIN. [Concomitant]
     Active Substance: CLARITHROMYCIN
  3. GRACEVIT [Concomitant]
     Active Substance: SITAFLOXACIN
  4. ZYVOX [Suspect]
     Active Substance: LINEZOLID
     Indication: MYCOBACTERIUM AVIUM COMPLEX INFECTION

REACTIONS (2)
  - Off label use [Unknown]
  - Death [Fatal]
